FAERS Safety Report 6442162-0 (Version None)
Quarter: 2009Q4

REPORT INFORMATION
  Report Type: 
  Country: None (occurrence: None)
  Receive Date: 20091116
  Receipt Date: 20091112
  Transmission Date: 20100525
  Serious: Yes (Death, Hospitalization, Other)
  Sender: FDA-Public Use
  Company Number: PHEH2009US10918

PATIENT
  Sex: Female

DRUGS (14)
  1. RECLAST [Suspect]
     Dosage: UNK
  2. MILK OF MAGNESIA TAB [Concomitant]
     Indication: CONSTIPATION
     Dosage: 30 CC EVERY THIRD DAY IF NO BM
     Route: 048
  3. ULTRACET [Concomitant]
     Indication: PAIN
     Dosage: 2 TABLETS, TID
     Route: 048
  4. ENALAPRIL [Concomitant]
     Dosage: 5 MG, QD
     Route: 048
  5. LEVOTHYROXINE SODIUM [Concomitant]
     Dosage: 50 UG, QD
     Route: 048
  6. LASIX [Concomitant]
     Dosage: 40 MG, QD
     Route: 048
  7. CALCIUM WITH VITAMIN D [Concomitant]
     Dosage: 1200 MG, QD
     Route: 048
  8. MULTIVITAMINS, OTHER COMBINATIONS [Concomitant]
     Dosage: UNK, DAILY
  9. SENOKOT                                 /UNK/ [Concomitant]
     Indication: CONSTIPATION
     Dosage: 2 TABLETS, BEDTIME
  10. BABY ASPIRIN [Concomitant]
     Dosage: UNK, DAILY
  11. CALCITRATE [Concomitant]
     Dosage: 2 TABLETS DAILY OR BID
     Route: 048
  12. MUCINEX [Concomitant]
     Indication: COUGH
     Dosage: 600 MG, BID, PRN
     Route: 048
  13. PNEUMOCOCCAL VACCINE [Concomitant]
     Dosage: UNK
     Dates: start: 20081001, end: 20081001
  14. INFLUENZA VACCINES [Concomitant]
     Dosage: UNK, UNK
     Dates: start: 20081001, end: 20081001

REACTIONS (12)
  - ABASIA [None]
  - BACK PAIN [None]
  - CATARACT [None]
  - DEATH [None]
  - GROIN PAIN [None]
  - MOVEMENT DISORDER [None]
  - NAUSEA [None]
  - NERVE ROOT COMPRESSION [None]
  - NUCLEAR MAGNETIC RESONANCE IMAGING ABNORMAL [None]
  - PAIN IN EXTREMITY [None]
  - SPINAL FRACTURE [None]
  - UROSEPSIS [None]
